FAERS Safety Report 18453228 (Version 2)
Quarter: 2020Q4

REPORT INFORMATION
  Report Type: Spontaneous
  Country: CH (occurrence: CH)
  Receive Date: 20201102
  Receipt Date: 20201130
  Transmission Date: 20210114
  Serious: Yes (Hospitalization, Other)
  Sender: FDA-Public Use
  Company Number: CH-BRISTOL-MYERS SQUIBB COMPANY-BMS-2020-090722

PATIENT
  Age: 62 Year
  Sex: Female
  Weight: 89.6 kg

DRUGS (12)
  1. SPRYCEL [Suspect]
     Active Substance: DASATINIB
     Dosage: 140 MILLIGRAM, QD
     Route: 048
     Dates: start: 20150201, end: 20150807
  2. SPRYCEL [Suspect]
     Active Substance: DASATINIB
     Dosage: 70 MILLIGRAM, QD
     Route: 048
     Dates: start: 20190903, end: 20200902
  3. MARCOUMAR [Concomitant]
     Active Substance: PHENPROCOUMON
     Indication: PRODUCT USED FOR UNKNOWN INDICATION
     Dosage: UNK
     Route: 065
  4. SPRYCEL [Suspect]
     Active Substance: DASATINIB
     Dosage: 60 MILLIGRAM, QD
     Route: 048
     Dates: start: 20190315, end: 20190328
  5. FUROSEMIDE. [Concomitant]
     Active Substance: FUROSEMIDE
     Indication: PRODUCT USED FOR UNKNOWN INDICATION
     Dosage: 40 MILLIGRAM, 1-0-0
     Route: 065
  6. SPRYCEL [Suspect]
     Active Substance: DASATINIB
     Indication: ACUTE LYMPHOCYTIC LEUKAEMIA
     Dosage: 140 MILLIGRAM, QD
     Route: 048
     Dates: start: 20141217, end: 20141225
  7. SPRYCEL [Suspect]
     Active Substance: DASATINIB
     Dosage: 70 MILLIGRAM, QD
     Route: 048
     Dates: start: 20141228, end: 20141230
  8. SPRYCEL [Suspect]
     Active Substance: DASATINIB
     Dosage: 90 MILLIGRAM, QD
     Route: 048
     Dates: start: 20141231, end: 20150101
  9. SPRYCEL [Suspect]
     Active Substance: DASATINIB
     Dosage: 70 MG ON DAY 1,3,5 AND 100MG ON DAY 2,4,6 (1 DAILY)
     Route: 048
     Dates: start: 20190701, end: 20190708
  10. PERINDOPRIL [Concomitant]
     Active Substance: PERINDOPRIL
     Indication: PRODUCT USED FOR UNKNOWN INDICATION
     Dosage: 5 MILLIGRAM, 1-0-0
     Route: 065
  11. SPRYCEL [Suspect]
     Active Substance: DASATINIB
     Dosage: 100 MILLIGRAM, QD
     Route: 048
     Dates: start: 20190329, end: 20190404
  12. SPRYCEL [Suspect]
     Active Substance: DASATINIB
     Dosage: 70 MG ON DAY 1,2,4,5 AND 100MG ON DAY 3,6,9 (1 DAILY)
     Route: 048
     Dates: start: 20190808, end: 20190902

REACTIONS (1)
  - Stress cardiomyopathy [Not Recovered/Not Resolved]

NARRATIVE: CASE EVENT DATE: 20200923
